FAERS Safety Report 19302051 (Version 1)
Quarter: 2021Q2

REPORT INFORMATION
  Report Type: Spontaneous
  Country: US (occurrence: US)
  Receive Date: 20210525
  Receipt Date: 20210525
  Transmission Date: 20210717
  Serious: No
  Sender: FDA-Public Use
  Company Number: US-TAKEDA-2021TUS031497

PATIENT
  Sex: Female

DRUGS (2)
  1. BENEFIBER FIBER SUPPLEMENT [Concomitant]
  2. MOTEGRITY [Suspect]
     Active Substance: PRUCALOPRIDE SUCCINATE
     Indication: CONSTIPATION
     Dosage: 2 MILLIGRAM, QD
     Route: 065
     Dates: start: 20210514

REACTIONS (3)
  - Drug ineffective [Unknown]
  - Headache [Unknown]
  - Nausea [Unknown]
